FAERS Safety Report 13608267 (Version 1)
Quarter: 2017Q2

REPORT INFORMATION
  Report Type: Spontaneous
  Country: US (occurrence: US)
  Receive Date: 20170602
  Receipt Date: 20170602
  Transmission Date: 20170830
  Serious: No
  Sender: FDA-Public Use
  Company Number: US-PERRIGO-16US018251

PATIENT
  Sex: Female

DRUGS (2)
  1. PERMETHRIN. [Suspect]
     Active Substance: PERMETHRIN
     Indication: ACARODERMATITIS
     Dosage: UNKNOWN, SINGLE
     Route: 061
     Dates: start: 20160709, end: 20160709
  2. PERMETHRIN. [Suspect]
     Active Substance: PERMETHRIN
     Dosage: UNKNOWN, SINGLE
     Route: 061
     Dates: start: 20160716, end: 20160716

REACTIONS (3)
  - Drug ineffective [Unknown]
  - Inappropriate schedule of drug administration [Recovered/Resolved]
  - Hypotension [Unknown]

NARRATIVE: CASE EVENT DATE: 201607
